FAERS Safety Report 16790558 (Version 3)
Quarter: 2019Q3

REPORT INFORMATION
  Report Type: Report from Study
  Country: US (occurrence: US)
  Receive Date: 20190910
  Receipt Date: 20190923
  Transmission Date: 20191005
  Serious: Yes (Other)
  Sender: FDA-Public Use
  Company Number: PHEH2019US036972

PATIENT
  Sex: Male

DRUGS (3)
  1. COSENTYX [Suspect]
     Active Substance: SECUKINUMAB
     Indication: PSORIASIS
     Dosage: 300 MG, QW
     Route: 058
  2. COSENTYX [Suspect]
     Active Substance: SECUKINUMAB
     Dosage: UNK
     Route: 065
  3. COSENTYX [Suspect]
     Active Substance: SECUKINUMAB
     Dosage: 300 MG, TWICE A WEEK
     Route: 058

REACTIONS (6)
  - Injury [Unknown]
  - Gait disturbance [Unknown]
  - Lower respiratory tract infection [Unknown]
  - Inappropriate schedule of product administration [Unknown]
  - Head discomfort [Unknown]
  - Arthralgia [Not Recovered/Not Resolved]
